FAERS Safety Report 21120989 (Version 2)
Quarter: 2022Q3

REPORT INFORMATION
  Report Type: Spontaneous
  Country: US (occurrence: US)
  Receive Date: 20220722
  Receipt Date: 20220901
  Transmission Date: 20221027
  Serious: No
  Sender: FDA-Public Use
  Company Number: US-PFIZER INC-202200991280

PATIENT
  Age: 78 Year
  Sex: Female
  Weight: 70.3 kg

DRUGS (3)
  1. PAXLOVID [Interacting]
     Active Substance: NIRMATRELVIR\RITONAVIR
     Indication: COVID-19 treatment
     Dosage: [PF-07321332 300 MG]/[RITONAVIR 100 MG]; 2X/DAY
     Dates: start: 20220627, end: 20220702
  2. DIGOXIN [Interacting]
     Active Substance: DIGOXIN
     Indication: Heart rate irregular
     Dosage: UNK
     Dates: start: 2002
  3. LATANOPROST [Concomitant]
     Active Substance: LATANOPROST
     Indication: Open angle glaucoma
     Dosage: UNK, 1X/DAY
     Route: 047
     Dates: start: 2017

REACTIONS (5)
  - Drug interaction [Unknown]
  - Hypotension [Recovered/Resolved]
  - Gait disturbance [Unknown]
  - COVID-19 [Recovered/Resolved]
  - Disease recurrence [Recovered/Resolved]

NARRATIVE: CASE EVENT DATE: 20220702
